FAERS Safety Report 9394926 (Version 1)
Quarter: 2013Q3

REPORT INFORMATION
  Report Type: Spontaneous
  Country: ES (occurrence: ES)
  Receive Date: 20130711
  Receipt Date: 20130711
  Transmission Date: 20140515
  Serious: Yes (Other)
  Sender: FDA-Public Use
  Company Number: ES-ELI_LILLY_AND_COMPANY-ES201307000089

PATIENT
  Age: 59 Year
  Sex: Female

DRUGS (3)
  1. CYMBALTA [Suspect]
     Dosage: 30 MG, UNKNOWN
     Dates: start: 20130522
  2. CYMBALTA [Suspect]
     Dosage: 60 MG, UNKNOWN
  3. CLORAZEPATE DIPOTASSIUM [Concomitant]
     Indication: ANXIETY
     Dosage: 5 MG, EACH EVENING
     Dates: start: 201304

REACTIONS (2)
  - Road traffic accident [Unknown]
  - Somnolence [Not Recovered/Not Resolved]
